FAERS Safety Report 18469408 (Version 1)
Quarter: 2020Q4

REPORT INFORMATION
  Report Type: Spontaneous
  Country: SE (occurrence: SE)
  Receive Date: 20201105
  Receipt Date: 20201105
  Transmission Date: 20210114
  Serious: Yes (Life-Threatening, Hospitalization, Disabling)
  Sender: FDA-Public Use
  Company Number: SE-MYLANLABS-2020M1092537

PATIENT
  Age: 53 Year
  Sex: Male

DRUGS (16)
  1. BUSPIRONE [Suspect]
     Active Substance: BUSPIRONE HYDROCHLORIDE
     Indication: POST-TRAUMATIC STRESS DISORDER
     Dosage: UNK
  2. QUETIAPINE. [Suspect]
     Active Substance: QUETIAPINE
     Indication: SCHIZOAFFECTIVE DISORDER
     Dosage: 25 MG (2-4 (IMPUTATION) FOR THE NIGHT))
     Route: 048
     Dates: start: 2019, end: 20200926
  3. QUETIAPINE. [Suspect]
     Active Substance: QUETIAPINE
     Indication: POST-TRAUMATIC STRESS DISORDER
     Dosage: UNK
  4. OLANZAPINE. [Suspect]
     Active Substance: OLANZAPINE
     Indication: SCHIZOAFFECTIVE DISORDER
     Dosage: 30 MILLIGRAM, QD (10 MG 3 (IMPUTATION) FOR THE NIGHT)
     Route: 048
     Dates: start: 2013, end: 20200926
  5. PROPAVAN [Concomitant]
     Active Substance: PROPIOMAZINE
     Dosage: 50 MILLIGRAM, QD (2 (IMPUTATION) FOR THE NIGHT))
     Dates: start: 2017, end: 20200926
  6. BUSPIRONE [Suspect]
     Active Substance: BUSPIRONE HYDROCHLORIDE
     Indication: SCHIZOAFFECTIVE DISORDER
     Dosage: 60 MILLIGRAM, QD (10 MG 3X2)
     Route: 048
     Dates: start: 2017, end: 20200926
  7. TROMBYL [Concomitant]
     Active Substance: ASPIRIN
     Dosage: 75 MILLIGRAM, QD
     Dates: start: 2015, end: 20201002
  8. ATORVASTATIN [Concomitant]
     Active Substance: ATORVASTATIN
     Dosage: 80 MILLIGRAM, QD
     Dates: start: 2017, end: 20201002
  9. NOZINAN                            /00038602/ [Suspect]
     Active Substance: LEVOMEPROMAZINE MALEATE
     Indication: SCHIZOAFFECTIVE DISORDER
     Dosage: 75 MILLIGRAM, QD (25 MG 3 (IMPUTATION) FOR THE NIGHT)
     Route: 048
     Dates: start: 2018, end: 20200926
  10. ZOPICLONE [Concomitant]
     Active Substance: ZOPICLONE
     Dosage: 7.5 MILLIGRAM, QD (1 (IMPUTATION) FOR THE NIGHT)
     Dates: start: 2013, end: 20200926
  11. MIRTAZAPINE. [Suspect]
     Active Substance: MIRTAZAPINE
     Indication: SCHIZOAFFECTIVE DISORDER
     Dosage: 45 MILLIGRAM, QD (30 MG 1,5 (IMPUTATION) FOR THE NIGHT)
     Route: 048
     Dates: start: 2013, end: 20200926
  12. OLANZAPINE. [Suspect]
     Active Substance: OLANZAPINE
     Indication: POST-TRAUMATIC STRESS DISORDER
     Dosage: UNK
  13. NOZINAN                            /00038602/ [Suspect]
     Active Substance: LEVOMEPROMAZINE MALEATE
     Indication: POST-TRAUMATIC STRESS DISORDER
     Dosage: UNK
  14. MELATONIN [Concomitant]
     Active Substance: MELATONIN
     Dosage: 10 MILLIGRAM, QD (5 (IMPUTATION) FOR THE NIGHT)
     Dates: start: 2019, end: 20200926
  15. MIRTAZAPINE. [Suspect]
     Active Substance: MIRTAZAPINE
     Indication: POST-TRAUMATIC STRESS DISORDER
     Dosage: UNK
  16. STESOLID [Concomitant]
     Active Substance: DIAZEPAM
     Dosage: 1 DOSAGE FORM, PRN (TAKEN UP TO 6 PIECES / PER DAY)
     Dates: start: 2014, end: 20200926

REACTIONS (3)
  - Electrocardiogram QT prolonged [Not Recovered/Not Resolved]
  - Cerebrovascular accident [Not Recovered/Not Resolved]
  - Accidental overdose [Not Recovered/Not Resolved]

NARRATIVE: CASE EVENT DATE: 20200926
